FAERS Safety Report 11181233 (Version 1)
Quarter: 2015Q2

REPORT INFORMATION
  Report Type: Spontaneous
  Country: US (occurrence: None)
  Receive Date: 20150610
  Receipt Date: 20150610
  Transmission Date: 20150821
  Serious: Yes (Life-Threatening, Hospitalization)
  Sender: FDA-Public Use
  Company Number: None

PATIENT
  Age: 41 Year
  Sex: Female
  Weight: 78.2 kg

DRUGS (16)
  1. FENTANYL. [Concomitant]
     Active Substance: FENTANYL
  2. HYDROCORTISONE. [Concomitant]
     Active Substance: HYDROCORTISONE
  3. EPINEPHRINE. [Concomitant]
     Active Substance: EPINEPHRINE
  4. LIDOCAINE. [Concomitant]
     Active Substance: LIDOCAINE
  5. PHENYLEPHRINE [Concomitant]
     Active Substance: PHENYLEPHRINE\PHENYLEPHRINE HYDROCHLORIDE
  6. PROPOFOL. [Concomitant]
     Active Substance: PROPOFOL
  7. VASOPRESSIN. [Concomitant]
     Active Substance: VASOPRESSIN
  8. ROCURONIUM [Suspect]
     Active Substance: ROCURONIUM BROMIDE
     Indication: HYSTERECTOMY
     Dates: start: 20150528
  9. MIDAZOLAM [Concomitant]
     Active Substance: MIDAZOLAM\MIDAZOLAM HYDROCHLORIDE
  10. DEXAMETHASONE. [Concomitant]
     Active Substance: DEXAMETHASONE
  11. FAMOTIDINE. [Concomitant]
     Active Substance: FAMOTIDINE
  12. CEFAZOLIN [Concomitant]
     Active Substance: CEFAZOLIN
  13. EPHEDRINE [Concomitant]
     Active Substance: EPHEDRINE
  14. SODIUM BICARB [Concomitant]
  15. MORPHINE [Concomitant]
     Active Substance: MORPHINE
  16. CALCIUM [Concomitant]
     Active Substance: CALCIUM

REACTIONS (5)
  - Cardiomegaly [None]
  - Procedural hypotension [None]
  - Lung infiltration [None]
  - Anaphylactic reaction [None]
  - Pulmonary oedema [None]

NARRATIVE: CASE EVENT DATE: 20150528
